FAERS Safety Report 6687674-X (Version None)
Quarter: 2010Q2

REPORT INFORMATION
  Report Type: 
  Country: None (occurrence: None)
  Receive Date: 20100415
  Receipt Date: 20100330
  Transmission Date: 20101027
  Serious: Yes (Death)
  Sender: FDA-Public Use
  Company Number: 1-22232293

PATIENT
  Age: 55 Year
  Sex: Female

DRUGS (3)
  1. FENTANYL-25 [Suspect]
  2. EMEND [Suspect]
     Indication: PROPHYLAXIS OF NAUSEA AND VOMITING
     Dosage: 125 MG, DAILY, ORAL
     Route: 048
  3. EMEND [Suspect]
     Indication: PROPHYLAXIS OF NAUSEA AND VOMITING
     Dosage: 80 MG, DAILY, ORAL
     Route: 048

REACTIONS (1)
  - DRUG LEVEL INCREASED [None]
